FAERS Safety Report 15428774 (Version 1)
Quarter: 2018Q4

REPORT INFORMATION
  Report Type: Spontaneous
  Country: IN (occurrence: IN)
  Receive Date: 20180926
  Receipt Date: 20180926
  Transmission Date: 20190204
  Serious: Yes (Other)
  Sender: FDA-Public Use
  Company Number: IN-ACCORD-072183

PATIENT
  Age: 42 Year
  Sex: Female

DRUGS (3)
  1. CISPLATIN. [Suspect]
     Active Substance: CISPLATIN
     Indication: MALIGNANT MELANOMA
     Dosage: CISPLATIN 20 MG/M2 REGIMEN REPEATED EVERY 3 WEEKS
  2. DACARBAZINE/DACARBAZINE CITRATE [Suspect]
     Active Substance: DACARBAZINE CITRATE
     Indication: MALIGNANT MELANOMA
     Dosage: REGIMEN REPEATED EVERY 3 WEEKS
  3. VINBLASTINE/VINBLASTINE SULFATE [Suspect]
     Active Substance: VINBLASTINE\VINBLASTINE SULFATE
     Indication: MALIGNANT MELANOMA
     Dosage: REGIMEN REPEATED EVERY 3 WEEKS

REACTIONS (4)
  - Weight decreased [Unknown]
  - Alopecia areata [Unknown]
  - Diarrhoea [Unknown]
  - Vomiting [Unknown]
